FAERS Safety Report 5672109-6 (Version None)
Quarter: 2008Q2

REPORT INFORMATION
  Report Type: 
  Country: None (occurrence: None)
  Receive Date: 20080219
  Receipt Date: 20071214
  Transmission Date: 20081010
  Serious: No
  Sender: FDA-Public Use
  Company Number: TPA2007A02506

PATIENT
  Age: 53 Year
  Sex: Female

DRUGS (4)
  1. ROZEREM [Suspect]
     Indication: INSOMNIA
     Dosage: 8 MG, QHS, PER ORAL ; 8 MG, QHS, PER ORAL
     Route: 048
     Dates: start: 20071201, end: 20071201
  2. ROZEREM [Suspect]
     Indication: INSOMNIA
     Dosage: 8 MG, QHS, PER ORAL ; 8 MG, QHS, PER ORAL
     Route: 048
     Dates: start: 20071213, end: 20071214
  3. COZAAR [Concomitant]
  4. VERAPAMIL [Concomitant]

REACTIONS (2)
  - INITIAL INSOMNIA [None]
  - MIDDLE INSOMNIA [None]
